FAERS Safety Report 22537335 (Version 1)
Quarter: 2023Q2

REPORT INFORMATION
  Report Type: Report from Study
  Country: MX (occurrence: MX)
  Receive Date: 20230608
  Receipt Date: 20230608
  Transmission Date: 20230722
  Serious: Yes (Other)
  Sender: FDA-Public Use
  Company Number: MX-002147023-NVSC2023MX129744

PATIENT
  Age: 49 Year
  Sex: Male
  Weight: 84 kg

DRUGS (3)
  1. EXFORGE [Suspect]
     Active Substance: AMLODIPINE BESYLATE\VALSARTAN
     Indication: Hypertension
     Dosage: 1 DOSAGE FORM, QD ((5/160  MG)
     Route: 048
     Dates: start: 2018
  2. EXFORGE [Suspect]
     Active Substance: AMLODIPINE BESYLATE\VALSARTAN
     Dosage: 5/320 MG
     Route: 065
     Dates: start: 202106
  3. EXFORGE [Suspect]
     Active Substance: AMLODIPINE BESYLATE\VALSARTAN
     Dosage: 10/320  MG (STARTED 1AND HALF  MONTH  AGO)
     Route: 065

REACTIONS (5)
  - COVID-19 pneumonia [Recovered/Resolved]
  - Hypertension [Recovering/Resolving]
  - Abdominal distension [Unknown]
  - Gastritis [Recovering/Resolving]
  - Fat tissue increased [Unknown]

NARRATIVE: CASE EVENT DATE: 20210703
